FAERS Safety Report 9938690 (Version 1)
Quarter: 2014Q1

REPORT INFORMATION
  Report Type: Spontaneous
  Country: IN (occurrence: IN)
  Receive Date: 20140303
  Receipt Date: 20140303
  Transmission Date: 20141002
  Serious: Yes (Other)
  Sender: FDA-Public Use
  Company Number: IN-JNJFOC-20140215045

PATIENT
  Age: 35 Year
  Sex: Female

DRUGS (7)
  1. RISPERIDONE [Suspect]
     Indication: PSYCHOTIC DISORDER
     Route: 065
  2. RISPERIDONE [Suspect]
     Indication: PSYCHOTIC DISORDER
     Route: 065
  3. QUETIAPINE [Suspect]
     Indication: PSYCHOTIC DISORDER
     Route: 065
  4. OLANZAPINE [Suspect]
     Indication: PSYCHOTIC DISORDER
     Route: 065
  5. LITHIUM [Suspect]
     Indication: PSYCHOTIC DISORDER
     Route: 065
  6. CLONAZEPAM [Suspect]
     Indication: PSYCHOTIC DISORDER
     Route: 065
  7. VITAMINE E [Concomitant]
     Dosage: 400MG TO 600MG PER DAY

REACTIONS (3)
  - Tardive dyskinesia [Not Recovered/Not Resolved]
  - Extrapyramidal disorder [Unknown]
  - Exposure during pregnancy [Recovered/Resolved]
